FAERS Safety Report 23619313 (Version 3)
Quarter: 2024Q4

REPORT INFORMATION
  Report Type: Report from Study
  Country: US (occurrence: US)
  Receive Date: 20240311
  Receipt Date: 20241004
  Transmission Date: 20250115
  Serious: Yes (Other)
  Sender: ABBVIE
  Company Number: US-ABBVIE-5672721

PATIENT
  Sex: Male

DRUGS (2)
  1. RINVOQ [Suspect]
     Active Substance: UPADACITINIB
     Indication: Crohn^s disease
     Dosage: FORM STRENGTH: 45 MILLIGRAM, LAST ADMIN DATE: 2024
     Route: 048
     Dates: start: 20240131
  2. RINVOQ [Suspect]
     Active Substance: UPADACITINIB
     Indication: Crohn^s disease
     Dosage: FIRST ADMIN DATE: 2024
     Route: 048

REACTIONS (3)
  - Brain neoplasm [Not Recovered/Not Resolved]
  - COVID-19 [Not Recovered/Not Resolved]
  - Pituitary tumour [Unknown]

NARRATIVE: CASE EVENT DATE: 20240101
